FAERS Safety Report 6920664-8 (Version None)
Quarter: 2010Q3

REPORT INFORMATION
  Report Type: 
  Country: None (occurrence: None)
  Receive Date: 20100812
  Receipt Date: 20100731
  Transmission Date: 20110219
  Serious: Yes (Other)
  Sender: FDA-Public Use
  Company Number: SE-BAYER-201032239GPV

PATIENT
  Age: 37 Year
  Sex: Female

DRUGS (1)
  1. MIRENA [Suspect]
     Indication: PRODUCT USED FOR UNKNOWN INDICATION
     Route: 015
     Dates: start: 20090610, end: 20100416

REACTIONS (6)
  - HEARING IMPAIRED [None]
  - HEMIPARESIS [None]
  - HYPERACUSIS [None]
  - HYPOAESTHESIA [None]
  - NIGHT SWEATS [None]
  - RESTLESSNESS [None]
